FAERS Safety Report 16708178 (Version 1)
Quarter: 2019Q3

REPORT INFORMATION
  Report Type: Report from Study
  Country: US (occurrence: US)
  Receive Date: 20190815
  Receipt Date: 20190815
  Transmission Date: 20191004
  Serious: Yes (Death)
  Sender: FDA-Public Use
  Company Number: PHEH2019US033808

PATIENT
  Age: 63 Year
  Sex: Male

DRUGS (1)
  1. AFINITOR [Suspect]
     Active Substance: EVEROLIMUS
     Indication: CHOLANGIOCARCINOMA
     Dosage: UNK
     Route: 065

REACTIONS (1)
  - Death [Fatal]
